FAERS Safety Report 8061686-6 (Version None)
Quarter: 2012Q1

REPORT INFORMATION
  Report Type: 
  Country: None (occurrence: None)
  Receive Date: 20120123
  Receipt Date: 20120112
  Transmission Date: 20120608
  Serious: Yes (Hospitalization)
  Sender: FDA-Public Use
  Company Number: US-BIOGENIDEC-2011BI047370

PATIENT
  Sex: Female

DRUGS (3)
  1. AVONEX [Concomitant]
     Indication: MULTIPLE SCLEROSIS
     Route: 030
  2. TYSABRI [Suspect]
     Indication: MULTIPLE SCLEROSIS
     Route: 042
     Dates: start: 20050203, end: 20050228
  3. TYSABRI [Suspect]
     Route: 042
     Dates: start: 20070430, end: 20110901

REACTIONS (4)
  - MUSCLE SPASMS [None]
  - URINARY TRACT INFECTION [None]
  - DEVICE RELATED INFECTION [None]
  - DISORIENTATION [None]
